FAERS Safety Report 17358429 (Version 2)
Quarter: 2020Q2

REPORT INFORMATION
  Report Type: Spontaneous
  Country: US (occurrence: US)
  Receive Date: 20200201
  Receipt Date: 20200513
  Transmission Date: 20200713
  Serious: Yes (Other)
  Sender: FDA-Public Use
  Company Number: US-ABBVIE-20K-163-3256322-00

PATIENT
  Sex: Female

DRUGS (1)
  1. HUMIRA [Suspect]
     Active Substance: ADALIMUMAB
     Indication: CROHN^S DISEASE
     Route: 058

REACTIONS (7)
  - Inflammation [Unknown]
  - Fatigue [Unknown]
  - Depressed mood [Unknown]
  - Adverse drug reaction [Unknown]
  - Decreased activity [Unknown]
  - Drug ineffective [Unknown]
  - Amnesia [Unknown]
